FAERS Safety Report 7326458-6 (Version None)
Quarter: 2011Q1

REPORT INFORMATION
  Report Type: 
  Country: None (occurrence: None)
  Receive Date: 20110218
  Receipt Date: 20110202
  Transmission Date: 20110831
  Serious: Yes (Death, Hospitalization)
  Sender: FDA-Public Use
  Company Number: 2011MA000983

PATIENT
  Age: 46 Year
  Sex: Male

DRUGS (2)
  1. NICOTINE [Suspect]
     Dosage: 175 MG
  2. TRAMADOL HYDROCHLORIDE [Suspect]

REACTIONS (10)
  - MULTIPLE DRUG OVERDOSE INTENTIONAL [None]
  - HAEMORRHAGE [None]
  - BRAIN OEDEMA [None]
  - PLEURAL HAEMORRHAGE [None]
  - DRUG INTERACTION [None]
  - PULMONARY OEDEMA [None]
  - COMPLETED SUICIDE [None]
  - PETECHIAE [None]
  - CONJUNCTIVAL HAEMORRHAGE [None]
  - CARDIAC FAILURE [None]
